FAERS Safety Report 22908974 (Version 2)
Quarter: 2024Q4

REPORT INFORMATION
  Report Type: Report from Study
  Country: CA (occurrence: CA)
  Receive Date: 20230905
  Receipt Date: 20241002
  Transmission Date: 20250115
  Serious: Yes (Other)
  Sender: BIOGEN
  Company Number: CA-BIOGEN-2023BI01196446

PATIENT
  Age: 48 Year
  Sex: Female

DRUGS (1)
  1. DALFAMPRIDINE [Suspect]
     Active Substance: DALFAMPRIDINE
     Indication: Product used for unknown indication
     Route: 050

REACTIONS (5)
  - Lymphocyte count decreased [Unknown]
  - Blood thyroid stimulating hormone decreased [Unknown]
  - Crystal urine present [Unknown]
  - White blood cells urine positive [Unknown]
  - Urine abnormality [Unknown]

NARRATIVE: CASE EVENT DATE: 20230228
